FAERS Safety Report 21246945 (Version 2)
Quarter: 2022Q3

REPORT INFORMATION
  Report Type: Report from Study
  Country: CN (occurrence: CN)
  Receive Date: 20220824
  Receipt Date: 20220912
  Transmission Date: 20221027
  Serious: Yes (Other)
  Sender: FDA-Public Use
  Company Number: CN-NOVARTISPH-NVSC2022CN188459

PATIENT
  Age: 65 Year
  Sex: Male

DRUGS (3)
  1. COSENTYX [Suspect]
     Active Substance: SECUKINUMAB
     Indication: Psoriasis
     Dosage: UNK
     Route: 058
     Dates: start: 202205
  2. COSENTYX [Suspect]
     Active Substance: SECUKINUMAB
     Dosage: UNK (TWO  INJECTIONS)
     Route: 058
     Dates: start: 20220716
  3. COSENTYX [Suspect]
     Active Substance: SECUKINUMAB
     Dosage: UNK (TWO  INJECTIONS)
     Route: 058
     Dates: start: 20220815

REACTIONS (2)
  - Choking [Unknown]
  - Dry throat [Unknown]

NARRATIVE: CASE EVENT DATE: 20220501
